FAERS Safety Report 8153010-5 (Version None)
Quarter: 2012Q1

REPORT INFORMATION
  Report Type: 
  Country: None (occurrence: None)
  Receive Date: 20120103
  Receipt Date: 20111028
  Transmission Date: 20120608
  Serious: No
  Sender: FDA-Public Use
  Company Number: AE-2011-002840

PATIENT
  Age: 57 Year
  Sex: Male
  Weight: 72.5755 kg

DRUGS (5)
  1. INCIVEK [Suspect]
     Dosage: 2250 MG (750 MG,3 IN 1 D),ORAL
     Route: 048
     Dates: start: 20111021
  2. LISINOPRIL WITH HYDROCHLOROTHIAZDIE (PRINZIDE) [Concomitant]
  3. RIBAVIRIN [Concomitant]
  4. PEGASYS [Concomitant]
  5. AMLODIPINE [Concomitant]

REACTIONS (3)
  - PROCTALGIA [None]
  - ANAL PRURITUS [None]
  - ANORECTAL DISCOMFORT [None]
